FAERS Safety Report 13545866 (Version 1)
Quarter: 2017Q2

REPORT INFORMATION
  Report Type: Spontaneous
  Country: GB (occurrence: GB)
  Receive Date: 20170515
  Receipt Date: 20170515
  Transmission Date: 20170830
  Serious: Yes (Other)
  Sender: FDA-Public Use
  Company Number: GB-JUBILANT CADISTA PHARMACEUTICALS-2017JUB00138

PATIENT
  Age: 60 Year
  Sex: Female

DRUGS (4)
  1. LAMOTRIGINE. [Suspect]
     Active Substance: LAMOTRIGINE
     Indication: TEMPORAL LOBE EPILEPSY
     Dosage: 125 MG, 2X/DAY
     Route: 065
  2. AJMALINE [Suspect]
     Active Substance: AJMALINE
     Indication: INVESTIGATION
     Dosage: 1 MG/KG OVER 5 MINUTES
     Route: 042
  3. AJMALINE [Suspect]
     Active Substance: AJMALINE
     Dosage: 1 MG/KG OVER 5 MINUTES (2 WEEKS AFTER WEANED FROM LAMOTRIGINE)
     Route: 042
  4. LEVETIRACETAM. [Concomitant]
     Active Substance: LEVETIRACETAM
     Dosage: 1.5 G, 2X/DAY
     Route: 065

REACTIONS (2)
  - Drug interaction [Recovered/Resolved]
  - Electrocardiogram QRS complex prolonged [Recovered/Resolved]
